FAERS Safety Report 22061886 (Version 2)
Quarter: 2023Q1

REPORT INFORMATION
  Report Type: Spontaneous
  Country: JP (occurrence: JP)
  Receive Date: 20230304
  Receipt Date: 20230314
  Transmission Date: 20230417
  Serious: Yes (Hospitalization, Other)
  Sender: FDA-Public Use
  Company Number: JP-Accord-302718

PATIENT
  Age: 59 Year
  Sex: Male

DRUGS (6)
  1. TACROLIMUS [Suspect]
     Active Substance: TACROLIMUS
     Indication: Immunosuppressant drug therapy
     Dates: start: 2018
  2. TACROLIMUS [Suspect]
     Active Substance: TACROLIMUS
     Indication: Immunosuppressant drug therapy
     Dates: start: 201808
  3. TACROLIMUS [Suspect]
     Active Substance: TACROLIMUS
     Indication: Immunosuppressant drug therapy
  4. TACROLIMUS [Suspect]
     Active Substance: TACROLIMUS
     Indication: Immunosuppressant drug therapy
     Dates: start: 202202
  5. TACROLIMUS [Suspect]
     Active Substance: TACROLIMUS
     Indication: Immunosuppressant drug therapy
  6. TACROLIMUS [Suspect]
     Active Substance: TACROLIMUS
     Indication: Immunosuppressant drug therapy
     Dates: start: 202207

REACTIONS (4)
  - Autoimmune neutropenia [Recovered/Resolved]
  - Febrile neutropenia [Recovered/Resolved]
  - Immune system disorder [Unknown]
  - Renal failure [Unknown]

NARRATIVE: CASE EVENT DATE: 20210101
